FAERS Safety Report 4608989-2 (Version None)
Quarter: 2005Q1

REPORT INFORMATION
  Report Type: 
  Country: None (occurrence: None)
  Receive Date: 20050311
  Receipt Date: 20050224
  Transmission Date: 20050727
  Serious: Yes (Death, Hospitalization, Other)
  Sender: FDA-Public Use
  Company Number: 2004233169US

PATIENT
  Age: 45 Year
  Sex: Male

DRUGS (14)
  1. CLINDAMYCIN HYDROCHLORIDE [Suspect]
     Indication: CHRONIC SINUSITIS
  2. GATIFLOXACIN [Suspect]
     Indication: CHRONIC SINUSITIS
  3. FLUTICASONE PROPIONATE [Concomitant]
  4. MOMETASONE FUROATE [Concomitant]
  5. PREDNISONE [Concomitant]
  6. VANCOMYCIN [Concomitant]
  7. LEVOFLOXACIN [Concomitant]
  8. PIP/TAZO (PIPERACILLIN SODIUM, TAZOBACTAM SODIUM) [Concomitant]
  9. PANTOPRAZOLE SODIUM [Concomitant]
  10. METHYLPREDNISOLONE [Concomitant]
  11. FLUCONAZOLE [Concomitant]
  12. ALLEGRA-D [Concomitant]
  13. MOXIFLOXACIN HYDROCHLORIDE [Suspect]
     Indication: CHRONIC SINUSITIS
     Route: 048
  14. CLAVULIN (AMOXICILLIN TRIHYDRATE, CLAVULANATE POTASSIUM) [Suspect]

REACTIONS (50)
  - ACQUIRED IMMUNODEFICIENCY SYNDROME [None]
  - AGITATION [None]
  - ASCITES [None]
  - ATELECTASIS [None]
  - BACTERIAL SEPSIS [None]
  - BILE DUCT OBSTRUCTION [None]
  - BLOOD CHLORIDE DECREASED [None]
  - BLOOD PRESSURE DIASTOLIC DECREASED [None]
  - BLOOD SODIUM DECREASED [None]
  - CANDIDIASIS [None]
  - CARDIAC ARREST [None]
  - CHEST PAIN [None]
  - CHILLS [None]
  - CHOLESTASIS [None]
  - CHRONIC HEPATITIS [None]
  - DEPRESSED LEVEL OF CONSCIOUSNESS [None]
  - DIALYSIS [None]
  - DISSEMINATED INTRAVASCULAR COAGULATION [None]
  - DRUG INEFFECTIVE [None]
  - ELECTROCARDIOGRAM ST SEGMENT ABNORMAL [None]
  - FAECAL OCCULT BLOOD POSITIVE [None]
  - GRANULOMATOUS LIVER DISEASE [None]
  - HAEMORRHAGE [None]
  - HEART RATE INCREASED [None]
  - HEPATIC FAILURE [None]
  - HEPATIC STEATOSIS [None]
  - HEPATO-LENTICULAR DEGENERATION [None]
  - HIV INFECTION [None]
  - HYPOAESTHESIA [None]
  - IMMUNODEFICIENCY [None]
  - LYMPHADENOPATHY [None]
  - MULTI-ORGAN FAILURE [None]
  - MUSCLE ATROPHY [None]
  - NASAL DISORDER [None]
  - PANCREATIC INSUFFICIENCY [None]
  - PANCYTOPENIA [None]
  - PARAESTHESIA [None]
  - PNEUMOCYSTIS JIROVECI PNEUMONIA [None]
  - PULMONARY OEDEMA [None]
  - PYREXIA [None]
  - REFUSAL OF TREATMENT BY PATIENT [None]
  - RENAL FAILURE [None]
  - RESPIRATORY FAILURE [None]
  - SPIDER NAEVUS [None]
  - SYPHILIS [None]
  - TACHYARRHYTHMIA [None]
  - THROMBOTIC THROMBOCYTOPENIC PURPURA [None]
  - TROPONIN INCREASED [None]
  - TUBERCULOSIS [None]
  - WEGENER'S GRANULOMATOSIS [None]
